FAERS Safety Report 17305966 (Version 2)
Quarter: 2020Q1

REPORT INFORMATION
  Report Type: Report from Study
  Country: KR (occurrence: KR)
  Receive Date: 20200123
  Receipt Date: 20200312
  Transmission Date: 20200409
  Serious: Yes (Hospitalization)
  Sender: FDA-Public Use
  Company Number: KR-CIRCASSIA PHARMACEUTICALS INC-2020KR000415

PATIENT
  Sex: Male

DRUGS (2)
  1. EKLIRA [Suspect]
     Active Substance: ACLIDINIUM BROMIDE
     Indication: PRODUCT USED FOR UNKNOWN INDICATION
     Dosage: UNK
     Route: 055
     Dates: start: 20190911
  2. BOTROPASE [Suspect]
     Active Substance: BATROXOBIN
     Indication: PROPHYLAXIS
     Dosage: 6 ML
     Route: 042
     Dates: start: 20191203, end: 20191211

REACTIONS (1)
  - Dysuria [Recovered/Resolved]
